FAERS Safety Report 4474510-5 (Version None)
Quarter: 2004Q4

REPORT INFORMATION
  Report Type: 
  Country: None (occurrence: None)
  Receive Date: 20041014
  Receipt Date: 20030630
  Transmission Date: 20050328
  Serious: No
  Sender: FDA-Public Use
  Company Number: PHEH2003US05540

PATIENT
  Age: 81 Year
  Sex: Female

DRUGS (3)
  1. NORTRIPTYLINE (WATSON) [Suspect]
     Indication: NEUROPATHY
     Dates: start: 20040801
  2. AMITRIPTYLINE HCL [Concomitant]
     Indication: NEUROPATHY
     Dates: end: 20040801
  3. DIOVAN [Suspect]
     Dosage: 160 MG, QD
     Route: 048
     Dates: start: 20030619

REACTIONS (7)
  - CHILLS [None]
  - DYSPNOEA [None]
  - HEPATIC ENZYME INCREASED [None]
  - JOINT SWELLING [None]
  - VIRAL INFECTION [None]
  - VOMITING [None]
  - WEIGHT DECREASED [None]
